FAERS Safety Report 21651344 (Version 1)
Quarter: 2022Q4

REPORT INFORMATION
  Report Type: Spontaneous
  Country: CN (occurrence: CN)
  Receive Date: 20221128
  Receipt Date: 20221128
  Transmission Date: 20230113
  Serious: Yes (Life-Threatening, Hospitalization, Other)
  Sender: FDA-Public Use
  Company Number: CN-PFIZER INC-PV202200109857

PATIENT
  Age: 24 Year
  Sex: Female
  Weight: 43 kg

DRUGS (3)
  1. METHYLPREDNISOLONE [Suspect]
     Active Substance: METHYLPREDNISOLONE
     Indication: Glomerulonephritis
     Dosage: 40 MG, DAILY
  2. METHYLPREDNISOLONE [Suspect]
     Active Substance: METHYLPREDNISOLONE
     Dosage: 200 MG, DAILY, 2 DAYS
  3. METHYLPREDNISOLONE [Suspect]
     Active Substance: METHYLPREDNISOLONE
     Dosage: 500 MG, DAILY (FOR 1 DAY)

REACTIONS (5)
  - Vaginal haemorrhage [Recovered/Resolved]
  - Abdominal distension [Unknown]
  - Haemoperitoneum [Unknown]
  - Diarrhoea [Unknown]
  - Haemoptysis [Unknown]
